FAERS Safety Report 17667481 (Version 6)
Quarter: 2020Q2

REPORT INFORMATION
  Report Type: Report from Study
  Country: AU (occurrence: AU)
  Receive Date: 20200414
  Receipt Date: 20200623
  Transmission Date: 20200713
  Serious: Yes (Hospitalization)
  Sender: FDA-Public Use
  Company Number: AU-PFIZER INC-2020150343

PATIENT
  Weight: 9.9 kg

DRUGS (19)
  1. NYSTATIN. [Concomitant]
     Active Substance: NYSTATIN
     Indication: CANDIDA INFECTION
     Dosage: 100000 IU, 4X/DAY
     Route: 048
     Dates: start: 20200309
  2. ONDANSETRON [Concomitant]
     Active Substance: ONDANSETRON
     Indication: NAUSEA
     Dosage: 1.6 MG, AS NEEDED (TDS PRN, 3X/DAY)
     Route: 042
     Dates: start: 20200205
  3. PARACETAMOL [Concomitant]
     Active Substance: ACETAMINOPHEN
     Indication: PYREXIA
  4. PARACETAMOL [Concomitant]
     Active Substance: ACETAMINOPHEN
     Indication: ANAESTHESIA
     Dosage: 150 MG, UNK (STAT)
     Route: 042
     Dates: start: 20200320, end: 20200320
  5. PROPOFOL. [Concomitant]
     Active Substance: PROPOFOL
     Dosage: 60 MG, UNK (STAT)
     Route: 042
     Dates: start: 20200324, end: 20200324
  6. ONDANSETRON [Concomitant]
     Active Substance: ONDANSETRON
     Indication: VOMITING
  7. BECLOMETASONE [Concomitant]
     Active Substance: BECLOMETHASONE DIPROPIONATE
     Indication: SINUSITIS
     Dosage: 50 UG, 2X/DAY
     Route: 045
     Dates: start: 20200325
  8. MITOXANTRONE HCL [Suspect]
     Active Substance: MITOXANTRONE HYDROCHLORIDE
     Indication: ACUTE MYELOID LEUKAEMIA
     Dosage: 6 MG/M2, 1X/DAY (AS INDUCTION THERAPY)
     Route: 042
     Dates: start: 20200206, end: 20200209
  9. METOCLOPRAMIDE. [Concomitant]
     Active Substance: METOCLOPRAMIDE
     Indication: NAUSEA
     Dosage: 1 MG, AS NEEDED (TDS PRN, 3X/DAY)
     Route: 042
     Dates: start: 20200308
  10. AMPHOTERICIN B. [Concomitant]
     Active Substance: AMPHOTERICIN B
     Indication: FEBRILE NEUTROPENIA
     Dosage: 10 MG, 1X/DAY
     Route: 042
     Dates: start: 20200312
  11. FENTANYL. [Concomitant]
     Active Substance: FENTANYL
     Indication: ANAESTHESIA
     Dosage: 30 UG, UNK (STAT)
     Route: 042
     Dates: start: 20200327, end: 20200327
  12. PROPOFOL. [Concomitant]
     Active Substance: PROPOFOL
     Indication: ANAESTHESIA
     Dosage: 40 MG, UNK (STAT)
     Route: 042
     Dates: start: 20200320, end: 20200320
  13. PROPOFOL. [Concomitant]
     Active Substance: PROPOFOL
     Dosage: 40 MG, UNK (STAT)
     Route: 042
     Dates: start: 20200327, end: 20200327
  14. METOCLOPRAMIDE. [Concomitant]
     Active Substance: METOCLOPRAMIDE
     Indication: VOMITING
  15. PARACETAMOL [Concomitant]
     Active Substance: ACETAMINOPHEN
     Indication: PAIN
     Dosage: 150 MG, AS NEEDED (QID PRN, 4X/DAY)
     Route: 048
     Dates: start: 20200308
  16. GEMTUZUMAB OZOGAMICIN [Suspect]
     Active Substance: GEMTUZUMAB OZOGAMICIN
     Indication: ACUTE MYELOID LEUKAEMIA
     Dosage: 1.5 MG, UNK (OTHER)
     Route: 042
     Dates: start: 20200210, end: 20200216
  17. PIPERACILLIN AND TAZOBACTAM [Concomitant]
     Active Substance: PIPERACILLIN SODIUM\TAZOBACTAM SODIUM
     Indication: FEBRILE NEUTROPENIA
     Dosage: 960 MG, 4X/DAY
     Route: 042
     Dates: start: 20200322, end: 20200403
  18. TRIMETHOPRIM SULFAMETHOXAZOLE [Concomitant]
     Active Substance: SULFAMETHOXAZOLE\TRIMETHOPRIM
     Indication: PNEUMOCYSTIS JIROVECII PNEUMONIA
     Dosage: 25 MG, 2X/DAY (MON/TUE/WED)
     Route: 048
     Dates: start: 20200210
  19. VANCOMYCIN [Concomitant]
     Active Substance: VANCOMYCIN
     Indication: CELLULITIS
     Dosage: 150 MG, 4X/DAY
     Route: 042
     Dates: start: 20200316, end: 20200325

REACTIONS (4)
  - Febrile neutropenia [Unknown]
  - Neutrophil count decreased [Unknown]
  - Platelet count decreased [Unknown]
  - Lymphadenopathy [Recovered/Resolved]

NARRATIVE: CASE EVENT DATE: 20200324
